FAERS Safety Report 9649719 (Version 1)
Quarter: 2013Q4

REPORT INFORMATION
  Report Type: Spontaneous
  Country: ES (occurrence: GB)
  Receive Date: 20131028
  Receipt Date: 20131028
  Transmission Date: 20140711
  Serious: Yes (Hospitalization)
  Sender: FDA-Public Use
  Company Number: GB-FRI-1000050522

PATIENT
  Age: 67 Year
  Sex: Male

DRUGS (9)
  1. ACLIDINIUM [Suspect]
     Indication: CHRONIC OBSTRUCTIVE PULMONARY DISEASE
     Dosage: 2 DOSAGE FORMS
     Route: 055
     Dates: start: 201308, end: 20131002
  2. ASPIRIN [Concomitant]
     Dosage: 75 MG
  3. CARBOCISTEINE [Concomitant]
     Dosage: 375 MG
  4. MEBEVERINE [Concomitant]
     Dosage: 200 MG
  5. OMEPRAZOLE [Concomitant]
     Dosage: 20 MG
  6. PERINDROPIL ARGININE [Concomitant]
     Dosage: 5 MG
  7. SALBUTAMOL [Concomitant]
  8. SYMBICORT [Concomitant]
  9. TAMSULOSIN [Concomitant]
     Dosage: 400 MCG

REACTIONS (3)
  - Atrial fibrillation [Recovering/Resolving]
  - Dyspnoea [Recovering/Resolving]
  - Malaise [Recovering/Resolving]
